FAERS Safety Report 8608377-8 (Version None)
Quarter: 2012Q3

REPORT INFORMATION
  Report Type: 
  Country: None (occurrence: None)
  Receive Date: 20120821
  Receipt Date: 20120815
  Transmission Date: 20120928
  Serious: Yes (Hospitalization)
  Sender: FDA-Public Use
  Company Number: DE-TEVA-354411USA

PATIENT
  Sex: Female
  Weight: 87 kg

DRUGS (4)
  1. RITUXIMAB [Suspect]
     Dosage: UNKNOWN/D
     Dates: start: 20111222, end: 20120217
  2. AMPICILLIN AND SULBACTAM [Concomitant]
     Dates: start: 20111201, end: 20120105
  3. BENDAMUSTINE HYDROCHLORIDE [Suspect]
     Dosage: UNKNOWN/D
     Dates: start: 20111222, end: 20120217
  4. JUNIK [Concomitant]
     Dosage: 100 UG 2 DF
     Dates: start: 20111201, end: 20120105

REACTIONS (2)
  - BRONCHITIS BACTERIAL [None]
  - PYREXIA [None]
